FAERS Safety Report 21470419 (Version 1)
Quarter: 2022Q4

REPORT INFORMATION
  Report Type: Spontaneous
  Country: GB (occurrence: GB)
  Receive Date: 20221018
  Receipt Date: 20221018
  Transmission Date: 20230112
  Serious: Yes (Other)
  Sender: FDA-Public Use
  Company Number: GB-MHRA-MED-202210051602408100-STBPV

PATIENT
  Age: 70 Year
  Sex: Female
  Weight: 60 kg

DRUGS (10)
  1. EZETIMIBE [Suspect]
     Active Substance: EZETIMIBE
     Indication: Blood cholesterol increased
     Dosage: UNK
     Route: 065
     Dates: start: 20220927, end: 20221001
  2. ASPIRIN [Concomitant]
     Active Substance: ASPIRIN
     Indication: Product used for unknown indication
     Dosage: UNK
     Route: 065
  3. CALCIUM\CHOLECALCIFEROL [Concomitant]
     Active Substance: CALCIUM\CHOLECALCIFEROL
     Indication: Product used for unknown indication
     Dosage: UNK
     Route: 065
  4. DILTIAZEM [Concomitant]
     Active Substance: DILTIAZEM
     Indication: Product used for unknown indication
     Dosage: UNK
     Route: 065
  5. ISOSORBIDE MONONITRATE [Concomitant]
     Active Substance: ISOSORBIDE MONONITRATE
     Indication: Product used for unknown indication
     Dosage: UNK
     Route: 065
  6. LEVOTHYROXINE [Concomitant]
     Active Substance: LEVOTHYROXINE
     Indication: Product used for unknown indication
     Dosage: UNK
     Route: 065
  7. OMEPRAZOLE [Concomitant]
     Active Substance: OMEPRAZOLE
     Indication: Product used for unknown indication
     Dosage: UNK
     Route: 065
  8. PENICILLIN V [Concomitant]
     Active Substance: PENICILLIN V
     Indication: Product used for unknown indication
     Dosage: UNK
     Route: 065
  9. TICAGRELOR [Concomitant]
     Active Substance: TICAGRELOR
     Indication: Product used for unknown indication
     Dosage: UNK
     Route: 065
  10. UMECLIDINIUM [Concomitant]
     Active Substance: UMECLIDINIUM
     Indication: Product used for unknown indication
     Dosage: UNK
     Route: 065

REACTIONS (8)
  - Crying [Recovering/Resolving]
  - Muscle spasms [Recovering/Resolving]
  - Anxiety [Recovering/Resolving]
  - Depressed mood [Recovering/Resolving]
  - Fatigue [Recovering/Resolving]
  - Dizziness [Recovering/Resolving]
  - Dissociation [Recovered/Resolved]
  - Dyspnoea [Recovered/Resolved]

NARRATIVE: CASE EVENT DATE: 20220927
